FAERS Safety Report 15618023 (Version 1)
Quarter: 2018Q4

REPORT INFORMATION
  Report Type: Spontaneous
  Country: GB (occurrence: US)
  Receive Date: 20181114
  Receipt Date: 20181114
  Transmission Date: 20190205
  Serious: Yes (Other)
  Sender: FDA-Public Use
  Company Number: GB-BAYER-2018-208328

PATIENT
  Age: 76 Year
  Sex: Male
  Weight: 64.3 kg

DRUGS (10)
  1. ALLOPURINOL. [Concomitant]
     Active Substance: ALLOPURINOL
  2. AXITINIB [Suspect]
     Active Substance: AXITINIB
     Indication: RENAL CELL CARCINOMA
     Dosage: UNK UNK, BID
     Route: 048
     Dates: start: 20170602
  3. SALBUTAMOL [Concomitant]
     Active Substance: ALBUTEROL
  4. STATIN [Concomitant]
     Active Substance: UNSPECIFIED INGREDIENT
  5. BAYER LOW DOSE [Suspect]
     Active Substance: ASPIRIN
     Indication: DISEASE RISK FACTOR
     Dosage: 75 MG, QD
     Route: 048
     Dates: start: 20180404, end: 20181026
  6. FORTISIP [Concomitant]
     Active Substance: CARBOHYDRATES\FATTY ACIDS\MINERALS\PROTEIN\VITAMINS
  7. APIXABAN [Suspect]
     Active Substance: APIXABAN
     Indication: PULMONARY EMBOLISM
     Dosage: 2.5 MG, UNK
     Route: 048
     Dates: start: 20180808, end: 20181026
  8. CODEINE PHOSPHATE [Concomitant]
     Active Substance: CODEINE PHOSPHATE
  9. LAXIDO [Concomitant]
     Active Substance: POLYETHYLENE GLYCOL 3350\POTASSIUM CHLORIDE\SODIUM BICARBONATE\SODIUM CHLORIDE
  10. AMLODIPINE [Concomitant]
     Active Substance: AMLODIPINE BESYLATE

REACTIONS (1)
  - Cerebrovascular accident [None]
